FAERS Safety Report 10461002 (Version 3)
Quarter: 2014Q3

REPORT INFORMATION
  Report Type: Report from Study
  Country: MX (occurrence: MX)
  Receive Date: 20140918
  Receipt Date: 20140924
  Transmission Date: 20150326
  Serious: Yes (Death, Hospitalization, Other)
  Sender: FDA-Public Use
  Company Number: PHHO2014MX010665

PATIENT

DRUGS (3)
  1. ICL670A [Suspect]
     Active Substance: DEFERASIROX
     Indication: MYELODYSPLASTIC SYNDROME
     Dosage: 20 MG, QD
     Route: 048
     Dates: start: 20140703, end: 20140827
  2. ERYTHROPOIETIN [Concomitant]
     Active Substance: ERYTHROPOIETIN
     Indication: MYELODYSPLASTIC SYNDROME
     Dosage: UNK
  3. DANAZOL. [Concomitant]
     Active Substance: DANAZOL
     Indication: MYELODYSPLASTIC SYNDROME
     Dosage: UNK

REACTIONS (7)
  - Vomiting [Unknown]
  - Pyrexia [Unknown]
  - Decreased appetite [Unknown]
  - Gastrointestinal haemorrhage [Unknown]
  - Intestinal haemorrhage [Fatal]
  - Renal failure [Unknown]
  - Asthenia [Unknown]

NARRATIVE: CASE EVENT DATE: 20140731
